FAERS Safety Report 22062523 (Version 1)
Quarter: 2023Q1

REPORT INFORMATION
  Report Type: Spontaneous
  Country: US (occurrence: US)
  Receive Date: 20230305
  Receipt Date: 20230305
  Transmission Date: 20230417
  Serious: Yes (Other)
  Sender: FDA-Public Use
  Company Number: US-BAXTER-2023BAX014054

PATIENT
  Age: 27 Year
  Sex: Male
  Weight: 79 kg

DRUGS (39)
  1. CEFEPIME [Suspect]
     Active Substance: CEFEPIME HYDROCHLORIDE
     Indication: Product used for unknown indication
     Dosage: UNK
     Route: 065
  2. ZOSYN [Suspect]
     Active Substance: PIPERACILLIN SODIUM\TAZOBACTAM SODIUM
     Indication: Product used for unknown indication
     Dosage: 4.5 G, THRICE DAILY, IN 100 ML 0.9% SODIUM CHLORIDE, EXTENDED 4 HOUR INFUSION
     Route: 042
  3. SODIUM CHLORIDE [Suspect]
     Active Substance: SODIUM CHLORIDE
     Indication: Medication dilution
     Dosage: 100 ML, THRICE DAILY, MIXED WITH 4.5 G ZOSYN, EXTENDED 4 HOUR INFUSION
     Route: 065
  4. SODIUM CHLORIDE [Suspect]
     Active Substance: SODIUM CHLORIDE
     Indication: Product used for unknown indication
     Dosage: 100 ML, ONCE DAILY, IN 100 MG MICAFUNGIN
     Route: 042
     Dates: end: 20220607
  5. SODIUM CHLORIDE [Suspect]
     Active Substance: SODIUM CHLORIDE
     Dosage: 10 ML, EVERY 8 HOURS INTRACATHETER (DOUBLE LUMEN, CONTINUOUS 0.9 % NACL SYRINGE 10 ML)
     Route: 042
     Dates: start: 20220607
  6. SODIUM CHLORIDE [Suspect]
     Active Substance: SODIUM CHLORIDE
     Dosage: 10 ML INTRACATHETER, AS NEEDED (0.9 % NACL SYRINGE 10 ML)
     Route: 042
     Dates: start: 20220526
  7. SODIUM CHLORIDE [Suspect]
     Active Substance: SODIUM CHLORIDE
     Dosage: 10 ML INTRACATHETER, EVERY 8 HOURS (SPECIFIED), (PERIPHERAL CONTINUOUS 0.9 % NACL SYRINGE 10 ML)
     Route: 042
     Dates: start: 20220607
  8. SODIUM CHLORIDE [Suspect]
     Active Substance: SODIUM CHLORIDE
     Dosage: 10 ML INTRACATHETER, AS NEEDED, (0.9 % NACL SYRINGE 10 ML)
     Route: 042
     Dates: start: 20220608
  9. SODIUM CHLORIDE [Suspect]
     Active Substance: SODIUM CHLORIDE
     Dosage: CONTINUOUS INFUSION AS NEEDED, LAST RATE: 10 ML/HR
     Route: 042
     Dates: start: 20220608
  10. SODIUM CHLORIDE [Suspect]
     Active Substance: SODIUM CHLORIDE
     Dosage: CONTINUOUS INFUSION AS NEEDED
     Route: 042
  11. DEXTROSE [Suspect]
     Active Substance: DEXTROSE
     Indication: Medication dilution
     Dosage: EVERY 12 HOURS, IN 360 MG ACICLOVIR, IN 100 ML BAG, STRENGTH: 5MG/KG
     Route: 042
     Dates: end: 20220607
  12. HEPARIN SODIUM [Suspect]
     Active Substance: HEPARIN SODIUM
     Dosage: LOCK FLUSH 10 UNITS/ML, 3 ML SYRINGE, 3 ML INTRACATHETER EVERY 8 HOURS (DOUBLE LUMEN)
     Route: 042
     Dates: start: 20220606
  13. HEPARIN SODIUM [Suspect]
     Active Substance: HEPARIN SODIUM
     Dosage: LOCK FLUSH 10 UNITS/ML, 3 ML SYRINGE, 3 ML INTRACATHETER AS NEEDED
     Route: 042
     Dates: start: 20220607
  14. MAGNESIUM SULFATE [Suspect]
     Active Substance: MAGNESIUM SULFATE
     Dosage: PRE-FILLED BAG 2 G 50 2 G AS NEEDED
     Route: 042
  15. GILTERITINIB [Suspect]
     Active Substance: GILTERITINIB
     Indication: Acute myeloid leukaemia
     Dosage: 120 MG, CYCLIC
     Route: 065
     Dates: start: 20220523, end: 20220525
  16. CYTARABINE [Suspect]
     Active Substance: CYTARABINE
     Indication: Acute myeloid leukaemia
     Dosage: 100 MG/M2, CYCLIC (TOTAL DOSE: 200 MG)
     Route: 042
     Dates: start: 20220514, end: 20220521
  17. DAUNORUBICIN [Suspect]
     Active Substance: DAUNORUBICIN
     Indication: Acute myeloid leukaemia
     Dosage: 90 MG/M2, CYCLIC (TOTAL DOSE: 180 MG)
     Route: 042
     Dates: start: 20220514, end: 20220516
  18. ZOVIRAX [Suspect]
     Active Substance: ACYCLOVIR
     Indication: Product used for unknown indication
     Dosage: 360 MG, EVERY 12 HOURS, IN 5% DEXTROSE 100 ML BAG, STRENGTH: 5MG/KG
     Route: 042
     Dates: end: 20220607
  19. MICAFUNGIN [Suspect]
     Active Substance: MICAFUNGIN
     Indication: Product used for unknown indication
     Dosage: 100 MG, ONCE DAILY, IN 100 ML 0.9% SODIUM CHLORIDE
     Route: 042
     Dates: end: 20220607
  20. MAALOX ANTACID [Suspect]
     Active Substance: ALUMINUM HYDROXIDE\DIMETHICONE\MAGNESIUM HYDROXIDE
     Dosage: 200-200-20 MG/5ML ORAL SUSPENSION 30 ML, 30 ML EVERY 4 HOURS AS NEEDED
     Route: 048
  21. TUMS [Suspect]
     Active Substance: CALCIUM CARBONATE
     Dosage: 1 TABLET, EVERY 1 HOUR AS NEEDED (STRENGTH: 500 MG)
     Route: 048
  22. REFRESH OPTIVE [Suspect]
     Active Substance: CARBOXYMETHYLCELLULOSE SODIUM\GLYCERIN
     Dosage: 1 DROP EACH EYE AS NEEDED, STRENGTH: 0.5 %- 0.9 %, DOSAGE FORM: OPHTHALMIC SOLUTION (SENSITIVE)
     Route: 047
  23. COLLAGENASE SANTYL [Suspect]
     Active Substance: COLLAGENASE CLOSTRIDIUM HISTOLYTICUM
     Dosage: EVERY DAY AT AN UNSPECIFIED DOSE
     Route: 061
  24. DECADRON [Suspect]
     Active Substance: DEXAMETHASONE
     Dosage: 4 MG, EVERY DAY (STRENGTH: 4 MG)
     Route: 042
  25. PEPCID [Suspect]
     Active Substance: FAMOTIDINE
     Dosage: 20 MG, 2X/DAY AS NEEDED (STRENGTH: 20 MG)
     Route: 048
  26. LIDOCAINE VISCOUS [Suspect]
     Active Substance: LIDOCAINE HYDROCHLORIDE
     Dosage: 15 ML MOUTH/THROAT EVERY 3 HOURS AS NEEDED, DOSAGE FORM: SOLUTION
     Route: 050
  27. LIDOCAINE [Suspect]
     Active Substance: LIDOCAINE
     Dosage: 1 PATCH EVERYDAY AS NEEDED
     Route: 062
  28. ALUMINUM HYDROXIDE\DIPHENHYDRAMINE\LIDOCAINE\MAGNESIUM HYDROXIDE [Suspect]
     Active Substance: ALUMINUM HYDROXIDE\DIPHENHYDRAMINE\LIDOCAINE\MAGNESIUM HYDROXIDE
     Dosage: 30 ML, 4 TIMES PER DAY AS NEEDED (RADIOTHERAPY MIXTURE)
     Route: 048
  29. IMODIUM [Suspect]
     Active Substance: LOPERAMIDE HYDROCHLORIDE
     Dosage: 2 MG, 4 TIMES PER DAY AS NEEDED (STRENGTH: 2 MG)
     Route: 048
  30. MELATONIN [Suspect]
     Active Substance: MELATONIN
     Dosage: 6 MG NIGHTLY AS NEEDED (STRENGTH: 6 MG)
     Route: 048
  31. POTASSIUM CHLORIDE [Suspect]
     Active Substance: POTASSIUM CHLORIDE
     Dosage: 20 MEQ IN 50 ML BAG, 20 MEQ AS NEEDED
     Route: 042
  32. ZOFRAN [Suspect]
     Active Substance: ONDANSETRON HYDROCHLORIDE
     Dosage: 8 MG, EVERY 12 HOURS AS NEEDED, DOSAGE FORM: DISINTEGRATING TABLET (STRENGTH: 8 MG)
     Route: 048
     Dates: start: 20220608
  33. ZOFRAN [Suspect]
     Active Substance: ONDANSETRON HYDROCHLORIDE
     Dosage: 8 MG, EVERY 12 HOURS AS NEEDED
     Route: 042
  34. ROXICODONE [Suspect]
     Active Substance: OXYCODONE HYDROCHLORIDE
     Dosage: 5 MG, EVERY 4 HOURS AS NEEDED (STRENGTH: 5 MG)
     Route: 048
  35. AFRIN [Suspect]
     Active Substance: OXYMETAZOLINE
     Dosage: 2 SPRAY AS NEEDED
     Route: 045
  36. PROTONIX [Suspect]
     Active Substance: PANTOPRAZOLE SODIUM
     Dosage: 40 MG, EVERY 12 HOURS (SPECIFIED), PN ADULT, PN NIGHTLY, LAST RATE: 144.7 ML/HR
     Route: 042
     Dates: start: 20220607
  37. COMPAZINE [Suspect]
     Active Substance: PROCHLORPERAZINE MALEATE
     Dosage: 10 MG, EVERY 4 HOURS AS NEEDED (STRENGTH: 10 MG)
     Route: 048
  38. COMPAZINE [Suspect]
     Active Substance: PROCHLORPERAZINE MALEATE
     Dosage: 10 MG, EVERY 6 HOURS AS NEEDED
     Route: 042
  39. ACTIGALL [Suspect]
     Active Substance: URSODIOL
     Dosage: 300 MG, 2 TIMES PER DAY (STRENGTH: 300 MG)
     Route: 048

REACTIONS (3)
  - Drug-induced liver injury [Recovering/Resolving]
  - Aspartate aminotransferase increased [Recovering/Resolving]
  - Blood bilirubin increased [Recovering/Resolving]

NARRATIVE: CASE EVENT DATE: 20220606
